FAERS Safety Report 5774788-1 (Version None)
Quarter: 2008Q2

REPORT INFORMATION
  Report Type: 
  Country: None (occurrence: None)
  Receive Date: 20080616
  Receipt Date: 20080616
  Transmission Date: 20081010
  Serious: Yes (Hospitalization)
  Sender: FDA-Public Use
  Company Number: None

PATIENT
  Age: 64 Year
  Sex: Female
  Weight: 68.0396 kg

DRUGS (2)
  1. BONIVA [Suspect]
     Indication: OSTEOPENIA
     Dosage: 1 MONTHLY;  1 ONTHLY
     Dates: start: 20070312
  2. BONIVA [Suspect]
     Indication: OSTEOPENIA
     Dosage: 1 MONTHLY;  1 ONTHLY
     Dates: start: 20070501

REACTIONS (5)
  - BACK PAIN [None]
  - FALL [None]
  - FOOT FRACTURE [None]
  - MOVEMENT DISORDER [None]
  - PAIN [None]
